FAERS Safety Report 10453423 (Version 1)
Quarter: 2014Q3

REPORT INFORMATION
  Report Type: Spontaneous
  Country: IR (occurrence: IR)
  Receive Date: 20140915
  Receipt Date: 20140915
  Transmission Date: 20150326
  Serious: Yes (Other)
  Sender: FDA-Public Use
  Company Number: IR-MYLAN-2014M1004365

PATIENT

DRUGS (2)
  1. MELPHALAN [Suspect]
     Active Substance: MELPHALAN
     Indication: RETINOBLASTOMA
     Dosage: 50 MICROG, 1 CYCLE
  2. MELPHALAN [Suspect]
     Active Substance: MELPHALAN
     Indication: OFF LABEL USE

REACTIONS (8)
  - Vitreous haemorrhage [Unknown]
  - Scar [None]
  - Retinal detachment [None]
  - Iris adhesions [Unknown]
  - Atrophy of globe [Not Recovered/Not Resolved]
  - Retinal degeneration [None]
  - Cataract [None]
  - Optic atrophy [None]
